FAERS Safety Report 9246340 (Version 2)
Quarter: 2013Q2

REPORT INFORMATION
  Report Type: Spontaneous
  Country: BR (occurrence: BR)
  Receive Date: 20130422
  Receipt Date: 20130624
  Transmission Date: 20140414
  Serious: Yes (Hospitalization, Other)
  Sender: FDA-Public Use
  Company Number: PHHY2013BR039220

PATIENT
  Sex: Female

DRUGS (2)
  1. DIOVAN [Suspect]
     Indication: HYPERTENSION
     Dosage: 1 DF (160MG), DAILY
     Route: 048
     Dates: end: 201304
  2. DIOVAN [Suspect]
     Dosage: 2 DF (80MG), DAILY
     Route: 048
     Dates: start: 201304

REACTIONS (1)
  - Infarction [Recovered/Resolved]
